FAERS Safety Report 9752510 (Version 1)
Quarter: 2013Q4

REPORT INFORMATION
  Report Type: Spontaneous
  Country: US (occurrence: None)
  Receive Date: 20131212
  Receipt Date: 20131212
  Transmission Date: 20140711
  Serious: Yes (Other)
  Sender: FDA-Public Use
  Company Number: None

PATIENT
  Sex: Female

DRUGS (1)
  1. LEVOFLOXACIN [Suspect]
     Indication: PNEUMONIA
     Route: 048
     Dates: start: 20131108, end: 20131115

REACTIONS (8)
  - Dyspnoea [None]
  - Chest pain [None]
  - Cough [None]
  - Haemorrhage urinary tract [None]
  - Bowel movement irregularity [None]
  - Vomiting [None]
  - Abdominal pain upper [None]
  - Decreased appetite [None]
